FAERS Safety Report 18797020 (Version 1)
Quarter: 2021Q1

REPORT INFORMATION
  Report Type: Spontaneous
  Country: BR (occurrence: BR)
  Receive Date: 20210127
  Receipt Date: 20210127
  Transmission Date: 20210419
  Serious: Yes (Other)
  Sender: FDA-Public Use
  Company Number: NVSC2021BR016472

PATIENT
  Age: 68 Year
  Sex: Male

DRUGS (2)
  1. GALVUS MET [Suspect]
     Active Substance: METFORMIN HYDROCHLORIDE\VILDAGLIPTIN
     Dosage: UNK
     Route: 065
  2. GALVUS MET [Suspect]
     Active Substance: METFORMIN HYDROCHLORIDE\VILDAGLIPTIN
     Indication: DIABETES MELLITUS
     Dosage: 2 DF, BID
     Route: 065
     Dates: start: 2011

REACTIONS (5)
  - Intervertebral disc protrusion [Unknown]
  - Prostatitis [Unknown]
  - Arrhythmia [Unknown]
  - Blood uric acid abnormal [Unknown]
  - Hypertension [Unknown]
